FAERS Safety Report 7085420-1 (Version None)
Quarter: 2010Q4

REPORT INFORMATION
  Report Type: 
  Country: None (occurrence: None)
  Receive Date: 20101105
  Receipt Date: 20101102
  Transmission Date: 20110411
  Serious: Yes (Death)
  Sender: FDA-Public Use
  Company Number: PE-PFIZER INC-2010139546

PATIENT
  Sex: Male

DRUGS (3)
  1. ZELDOX [Suspect]
     Dosage: 80 MG, UNK
     Route: 030
  2. BIPERIDEN [Concomitant]
     Dosage: UNK
  3. RISPERIDONE [Concomitant]
     Dosage: UNK

REACTIONS (2)
  - BRAIN OEDEMA [None]
  - SUDDEN DEATH [None]
